FAERS Safety Report 7055674-6 (Version None)
Quarter: 2010Q4

REPORT INFORMATION
  Report Type: 
  Country: None (occurrence: None)
  Receive Date: 20101021
  Receipt Date: 20101013
  Transmission Date: 20110411
  Serious: Yes (Other)
  Sender: FDA-Public Use
  Company Number: ES-JNJFOC-20101004476

PATIENT
  Age: 90 Year
  Sex: Female

DRUGS (1)
  1. STELARA [Suspect]
     Indication: PSORIASIS
     Route: 058

REACTIONS (3)
  - BETA 2 MICROGLOBULIN INCREASED [None]
  - HIGH DENSITY LIPOPROTEIN INCREASED [None]
  - PRURITUS [None]
